FAERS Safety Report 17814965 (Version 1)
Quarter: 2020Q2

REPORT INFORMATION
  Report Type: Spontaneous
  Country: US (occurrence: US)
  Receive Date: 20200522
  Receipt Date: 20200522
  Transmission Date: 20200714
  Serious: No
  Sender: FDA-Public Use
  Company Number: US-GILEAD-2020-0460961

PATIENT
  Sex: Male

DRUGS (13)
  1. SOFOSBUVIR;VELPATASVIR [Suspect]
     Active Substance: SOFOSBUVIR\VELPATASVIR
     Indication: CHRONIC HEPATITIS C
     Dosage: 1 DOSAGE FORM, QD
     Route: 048
  2. MAGNESIUM [Concomitant]
     Active Substance: MAGNESIUM
  3. SPIRONOLACTONE. [Concomitant]
     Active Substance: SPIRONOLACTONE
  4. FAMOTIDINE. [Concomitant]
     Active Substance: FAMOTIDINE
  5. BUMETANIDE. [Concomitant]
     Active Substance: BUMETANIDE
  6. POTASSIUM [Concomitant]
     Active Substance: POTASSIUM
  7. THIAMINE. [Concomitant]
     Active Substance: THIAMINE
  8. RIBAVIRIN. [Concomitant]
     Active Substance: RIBAVIRIN
  9. LACTULOSE. [Concomitant]
     Active Substance: LACTULOSE
  10. ALBUTEROL [SALBUTAMOL SULFATE] [Concomitant]
     Active Substance: ALBUTEROL SULFATE
  11. ALPRAZOLAM. [Concomitant]
     Active Substance: ALPRAZOLAM
  12. FOLIC ACID. [Concomitant]
     Active Substance: FOLIC ACID
  13. AMITRIPTYLINE HYDROCHLORIDE. [Concomitant]
     Active Substance: AMITRIPTYLINE HYDROCHLORIDE

REACTIONS (3)
  - Dyspnoea [Not Recovered/Not Resolved]
  - Fatigue [Not Recovered/Not Resolved]
  - Product dose omission [Recovered/Resolved]
